FAERS Safety Report 9653323 (Version 3)
Quarter: 2013Q4

REPORT INFORMATION
  Report Type: Report from Study
  Country: GB (occurrence: GB)
  Receive Date: 20131029
  Receipt Date: 20131108
  Transmission Date: 20140711
  Serious: Yes (Death, Other)
  Sender: FDA-Public Use
  Company Number: GB-ABBVIE-13P-167-1115493-00

PATIENT
  Age: 64 Year
  Sex: 0

DRUGS (6)
  1. HUMIRA [Suspect]
     Indication: RHEUMATOID ARTHRITIS
     Route: 058
     Dates: start: 200706, end: 20130417
  2. METHOTREXATE [Concomitant]
     Indication: RHEUMATOID ARTHRITIS
     Dates: start: 200706
  3. METHOTREXATE [Concomitant]
  4. HYDROXYCHLOROQUINE [Concomitant]
     Indication: RHEUMATOID ARTHRITIS
     Dates: start: 20070330
  5. LEFLUNOMIDE [Concomitant]
     Indication: RHEUMATOID ARTHRITIS
  6. SULPHASALAZINE [Concomitant]
     Indication: RHEUMATOID ARTHRITIS

REACTIONS (11)
  - Hepatosplenic T-cell lymphoma [Fatal]
  - Bone marrow tumour cell infiltration [Fatal]
  - Gastrointestinal perforation [Fatal]
  - Sepsis [Fatal]
  - Rheumatoid arthritis [Unknown]
  - Escherichia urinary tract infection [Unknown]
  - Splenomegaly [Unknown]
  - Splenic infarction [Unknown]
  - Liver function test abnormal [Not Recovered/Not Resolved]
  - Gastrointestinal haemorrhage [Unknown]
  - Pleural effusion [Unknown]
